FAERS Safety Report 15888671 (Version 1)
Quarter: 2019Q1

REPORT INFORMATION
  Report Type: Spontaneous
  Country: US (occurrence: US)
  Receive Date: 20190129
  Receipt Date: 20190129
  Transmission Date: 20190417
  Serious: Yes (Hospitalization)
  Sender: FDA-Public Use
  Company Number: None

PATIENT
  Age: 72 Year
  Sex: Male
  Weight: 110.7 kg

DRUGS (1)
  1. CARBOPLATIN. [Suspect]
     Active Substance: CARBOPLATIN
     Route: 041

REACTIONS (5)
  - Respiratory distress [None]
  - Pain in jaw [None]
  - Flushing [None]
  - Chest discomfort [None]
  - Musculoskeletal chest pain [None]

NARRATIVE: CASE EVENT DATE: 20181113
